FAERS Safety Report 6889134-X (Version None)
Quarter: 2010Q3

REPORT INFORMATION
  Report Type: 
  Country: None (occurrence: None)
  Receive Date: 20100730
  Receipt Date: 20071226
  Transmission Date: 20110219
  Serious: No
  Sender: FDA-Public Use
  Company Number: US-PFIZER INC-2008000249

PATIENT
  Sex: Male
  Weight: 92.272 kg

DRUGS (4)
  1. LIPITOR [Suspect]
     Indication: BLOOD CHOLESTEROL
     Route: 048
     Dates: start: 20071205, end: 20071205
  2. ACETYLSALICYLIC ACID SRT [Concomitant]
  3. PLAVIX [Concomitant]
  4. METOPROLOL TARTRATE [Concomitant]

REACTIONS (1)
  - PARAESTHESIA [None]
